FAERS Safety Report 5446985-6 (Version None)
Quarter: 2007Q3

REPORT INFORMATION
  Report Type: 
  Country: None (occurrence: None)
  Receive Date: 20070803
  Receipt Date: 20070525
  Transmission Date: 20080115
  Serious: Yes (Other)
  Sender: FDA-Public Use
  Company Number: US-JNJFOC-20070500319

PATIENT
  Age: 24 Month
  Sex: Female
  Weight: 13.6079 kg

DRUGS (1)
  1. TYLENOL (CAPLET) [Suspect]
     Indication: ACCIDENTAL EXPOSURE
     Dosage: ENTIRE BOTTLE (MINUS 5 ML PREVIOUSLY DISPENSED) ONCE;
     Dates: start: 20070427, end: 20070427

REACTIONS (2)
  - ACCIDENTAL DRUG INTAKE BY CHILD [None]
  - ACCIDENTAL OVERDOSE [None]
